FAERS Safety Report 7799319-6 (Version None)
Quarter: 2011Q4

REPORT INFORMATION
  Report Type: 
  Country: None (occurrence: None)
  Receive Date: 20111006
  Receipt Date: 20110927
  Transmission Date: 20120403
  Serious: Yes (Life-Threatening, Hospitalization)
  Sender: FDA-Public Use
  Company Number: PHHY2011GB87331

PATIENT
  Age: 31 Year
  Sex: Female
  Weight: 63.5 kg

DRUGS (1)
  1. OMEPRAZOLE [Suspect]
     Indication: GASTRIC PH DECREASED

REACTIONS (17)
  - SPEECH DISORDER [None]
  - DROOLING [None]
  - MUSCULOSKELETAL STIFFNESS [None]
  - TINNITUS [None]
  - PRURITUS [None]
  - PUPILLARY DISORDER [None]
  - ABASIA [None]
  - EYE PAIN [None]
  - SEROTONIN SYNDROME [None]
  - NEUROLEPTIC MALIGNANT SYNDROME [None]
  - VIITH NERVE PARALYSIS [None]
  - SCHIZOPHRENIA [None]
  - MUSCLE RIGIDITY [None]
  - MYALGIA [None]
  - COGWHEEL RIGIDITY [None]
  - ARTHRALGIA [None]
  - INCOHERENT [None]
